FAERS Safety Report 5941474-4 (Version None)
Quarter: 2008Q4

REPORT INFORMATION
  Report Type: 
  Country: None (occurrence: None)
  Receive Date: 20081105
  Receipt Date: 20081104
  Transmission Date: 20090506
  Serious: Yes (Death)
  Sender: FDA-Public Use
  Company Number: US-BAYER-200826436NA

PATIENT
  Age: 85 Year
  Sex: Male

DRUGS (1)
  1. SORAFENIB [Suspect]
     Indication: PROSTATE CANCER METASTATIC
     Dosage: TOTAL DAILY DOSE: 800 MG  UNIT DOSE: 200 MG
     Route: 048

REACTIONS (1)
  - HAEMORRHAGIC STROKE [None]
